FAERS Safety Report 12799950 (Version 2)
Quarter: 2016Q4

REPORT INFORMATION
  Report Type: Report from Study
  Country: DE (occurrence: DE)
  Receive Date: 20160930
  Receipt Date: 20161005
  Transmission Date: 20170207
  Serious: Yes (Hospitalization)
  Sender: FDA-Public Use
  Company Number: DE-TEVA-697142ACC

PATIENT
  Age: 72 Year
  Sex: Male

DRUGS (13)
  1. TOREM                              /01036501/ [Concomitant]
     Active Substance: TORSEMIDE
     Indication: RENAL FAILURE
     Route: 048
     Dates: start: 2014, end: 20160827
  2. BELOC                              /00376903/ [Concomitant]
     Active Substance: METOPROLOL TARTRATE
     Indication: ARRHYTHMIA
     Route: 048
     Dates: start: 2014, end: 20160827
  3. BENDAMUSTINE HYDROCHLORIDE. [Suspect]
     Active Substance: BENDAMUSTINE HYDROCHLORIDE
     Indication: PRODUCT USED FOR UNKNOWN INDICATION
     Route: 042
     Dates: start: 20160614, end: 20160913
  4. PREDNISONE. [Suspect]
     Active Substance: PREDNISONE
     Indication: PRODUCT USED FOR UNKNOWN INDICATION
     Route: 048
     Dates: start: 20160614, end: 20160913
  5. CANDESARTAN [Concomitant]
     Active Substance: CANDESARTAN
     Indication: LEFT VENTRICULAR FAILURE
     Route: 048
     Dates: start: 2015, end: 20160827
  6. FERROSANOL [Concomitant]
     Active Substance: FERROUS GLUCONATE
     Indication: ANAEMIA
     Route: 048
     Dates: start: 2015, end: 20160827
  7. PREDNISONE. [Suspect]
     Active Substance: PREDNISONE
     Dosage: LAST DOSE PRIOR TO THE EVENT
     Dates: start: 20160826
  8. BORTEZOMIB [Suspect]
     Active Substance: BORTEZOMIB
     Dosage: LAST DOSE PRIOR TO THE EVENT
     Dates: start: 20160823
  9. ALLOPURINOL. [Concomitant]
     Active Substance: ALLOPURINOL
     Indication: HYPERURICAEMIA
     Route: 048
     Dates: start: 201308, end: 20160827
  10. PANTOZOL [Concomitant]
     Active Substance: PANTOPRAZOLE SODIUM
     Indication: OESOPHAGITIS
     Route: 048
     Dates: start: 201308, end: 20160827
  11. BORTEZOMIB [Suspect]
     Active Substance: BORTEZOMIB
     Indication: PRODUCT USED FOR UNKNOWN INDICATION
     Route: 058
     Dates: start: 20160614, end: 20160913
  12. AQUAPHOR [Concomitant]
     Active Substance: PETROLATUM
     Indication: OEDEMA
     Route: 048
     Dates: start: 2015, end: 20160827
  13. AMLODIPIN                          /00972401/ [Concomitant]
     Active Substance: AMLODIPINE BESYLATE
     Indication: HYPERTENSION
     Route: 048
     Dates: start: 2014, end: 20160827

REACTIONS (2)
  - Cardiac failure [Recovered/Resolved]
  - Pneumonia [Recovered/Resolved]

NARRATIVE: CASE EVENT DATE: 20160828
